FAERS Safety Report 16665205 (Version 2)
Quarter: 2021Q3

REPORT INFORMATION
  Report Type: Spontaneous
  Country: US (occurrence: US)
  Receive Date: 20190803
  Receipt Date: 20210806
  Transmission Date: 20211014
  Serious: Yes (Other)
  Sender: FDA-Public Use
  Company Number: US-ACCORD-113352

PATIENT
  Age: 44 Year
  Sex: Female

DRUGS (15)
  1. HERCEPTIN [Suspect]
     Active Substance: TRASTUZUMAB
     Indication: BREAST CANCER
     Dates: start: 20150219, end: 20150611
  2. ZYRTEC [Concomitant]
     Active Substance: CETIRIZINE HYDROCHLORIDE
     Dosage: STRENGTH: 10 MG
  3. PROCHLORPERAZINE. [Concomitant]
     Active Substance: PROCHLORPERAZINE
  4. LORAZEPAM. [Concomitant]
     Active Substance: LORAZEPAM
  5. GABAPENTIN. [Concomitant]
     Active Substance: GABAPENTIN
  6. VENLAFAXINE/VENLAFAXINE HYDROCHLORIDE [Concomitant]
     Active Substance: VENLAFAXINE HYDROCHLORIDE
  7. SULFADIAZINE. [Concomitant]
     Active Substance: SULFADIAZINE
  8. PRILOSEC [Concomitant]
     Active Substance: OMEPRAZOLE MAGNESIUM
  9. PARACETAMOL [Concomitant]
     Active Substance: ACETAMINOPHEN
  10. DIFLUCAN [Concomitant]
     Active Substance: FLUCONAZOLE
  11. NYSTATIN/NYSTATIN/LIPOSOME [Concomitant]
     Active Substance: NYSTATIN
  12. HYDROCODONE [Concomitant]
     Active Substance: HYDROCODONE
  13. TAMOXIFEN [Concomitant]
     Active Substance: TAMOXIFEN
  14. PARAPLATIN [Suspect]
     Active Substance: CARBOPLATIN
     Indication: BREAST CANCER
     Dates: start: 20150219, end: 20150611
  15. DOCETAXEL ACCORD [Suspect]
     Active Substance: DOCETAXEL
     Indication: BREAST CANCER
     Dates: start: 20150219, end: 20150611

REACTIONS (1)
  - Alopecia [Not Recovered/Not Resolved]
